FAERS Safety Report 11980572 (Version 3)
Quarter: 2016Q3

REPORT INFORMATION
  Report Type: Spontaneous
  Country: AU (occurrence: AU)
  Receive Date: 20160129
  Receipt Date: 20160811
  Transmission Date: 20161109
  Serious: Yes (Other)
  Sender: FDA-Public Use
  Company Number: AU-ELI_LILLY_AND_COMPANY-AU201601008694

PATIENT
  Sex: Male

DRUGS (5)
  1. PROZAC [Suspect]
     Active Substance: FLUOXETINE HYDROCHLORIDE
     Indication: PRODUCT USED FOR UNKNOWN INDICATION
     Dosage: UNK, UNKNOWN
     Route: 065
  2. ZYPREXA [Suspect]
     Active Substance: OLANZAPINE
     Indication: PSYCHOTIC DISORDER
     Dosage: 3.12 MG, UNKNOWN
     Dates: start: 201507
  3. DESVENLAFAXINE. [Concomitant]
     Active Substance: DESVENLAFAXINE
     Dosage: UNK, UNKNOWN
  4. ZYPREXA [Suspect]
     Active Substance: OLANZAPINE
     Indication: SOCIAL ANXIETY DISORDER
     Dosage: UNK, UNKNOWN
     Route: 065
  5. QUETIAPINE. [Concomitant]
     Active Substance: QUETIAPINE
     Dosage: 50 MG, UNKNOWN

REACTIONS (14)
  - Suicidal ideation [Not Recovered/Not Resolved]
  - Neurotransmitter level altered [Unknown]
  - Drug withdrawal syndrome [Not Recovered/Not Resolved]
  - Vomiting [Not Recovered/Not Resolved]
  - Depersonalisation/derealisation disorder [Not Recovered/Not Resolved]
  - Akathisia [Unknown]
  - Fatigue [Not Recovered/Not Resolved]
  - Insomnia [Not Recovered/Not Resolved]
  - Weight increased [Unknown]
  - Cognitive disorder [Unknown]
  - Anxiety [Not Recovered/Not Resolved]
  - Autonomic nervous system imbalance [Unknown]
  - Asthenia [Unknown]
  - Off label use [Unknown]
